FAERS Safety Report 16854782 (Version 1)
Quarter: 2019Q3

REPORT INFORMATION
  Report Type: Spontaneous
  Country: CA (occurrence: CA)
  Receive Date: 20190926
  Receipt Date: 20190926
  Transmission Date: 20191005
  Serious: Yes (Life-Threatening, Hospitalization, Other)
  Sender: FDA-Public Use
  Company Number: CA-TEVA-2019-CA-1056280

PATIENT
  Age: 66 Year
  Sex: Female

DRUGS (4)
  1. BETAMETHASONE. [Suspect]
     Active Substance: BETAMETHASONE
     Indication: ACUTE GENERALISED EXANTHEMATOUS PUSTULOSIS
     Route: 065
  2. VANCOMYCIN [Concomitant]
     Active Substance: VANCOMYCIN
     Dosage: DOSAGE FORM: NOT SPECIFIED
     Route: 065
  3. PIPERACILLIN/TAZOBACTAM [Suspect]
     Active Substance: PIPERACILLIN SODIUM\TAZOBACTAM SODIUM
     Indication: CELLULITIS
     Route: 065
  4. METHYLPREDNISOLONE NOS [Suspect]
     Active Substance: METHYLPREDNISOLONE
     Indication: ACUTE GENERALISED EXANTHEMATOUS PUSTULOSIS
     Dosage: 125 MILLIGRAM DAILY;
     Route: 065

REACTIONS (17)
  - Confusional state [Recovered/Resolved]
  - Hypotension [Recovered/Resolved]
  - Rash morbilliform [Recovered/Resolved]
  - Respiratory failure [Recovered/Resolved]
  - Pyrexia [Recovered/Resolved]
  - Delirium [Recovered/Resolved]
  - Erythema [Recovered/Resolved]
  - Acute generalised exanthematous pustulosis [Recovered/Resolved]
  - Rash pustular [Recovered/Resolved]
  - Acute kidney injury [Recovered/Resolved]
  - Eosinophilia [Recovered/Resolved]
  - Disorientation [Recovered/Resolved]
  - Hypercapnia [Recovered/Resolved]
  - Hepatitis [Recovered/Resolved]
  - Agitation [Recovered/Resolved]
  - Hepatic enzyme increased [Recovered/Resolved]
  - Leukocytosis [Recovered/Resolved]
